FAERS Safety Report 15010920 (Version 1)
Quarter: 2018Q2

REPORT INFORMATION
  Report Type: Spontaneous
  Country: US (occurrence: US)
  Receive Date: 20180529
  Receipt Date: 20180529
  Transmission Date: 20180711
  Serious: Yes (Life-Threatening, Hospitalization, Disabling, Other)
  Sender: FDA-Public Use
  Company Number: None

PATIENT
  Age: 55 Year
  Sex: Male
  Weight: 78.75 kg

DRUGS (20)
  1. LEVOTHYROXINE. [Concomitant]
     Active Substance: LEVOTHYROXINE
  2. XYREM (SODIUM OXYBATE) [Concomitant]
  3. LYRICA [Concomitant]
     Active Substance: PREGABALIN
  4. TRAMADOL. [Concomitant]
     Active Substance: TRAMADOL
  5. NA BICARB [Concomitant]
  6. OMEPRAZOLE. [Concomitant]
     Active Substance: OMEPRAZOLE
  7. VIT. D COMPLEX [Concomitant]
  8. NSAIDS [Concomitant]
     Active Substance: UNSPECIFIED INGREDIENT
  9. MULTIVITAMIN [Concomitant]
     Active Substance: VITAMINS
  10. ADDERALL [Concomitant]
     Active Substance: AMPHETAMINE ASPARTATE\AMPHETAMINE SULFATE\DEXTROAMPHETAMINE SACCHARATE\DEXTROAMPHETAMINE SULFATE
  11. GEODON [Suspect]
     Active Substance: ZIPRASIDONE HYDROCHLORIDE\ZIPRASIDONE MESYLATE
     Indication: STRESS
     Dates: start: 20060801, end: 20110101
  12. MELOXICAM. [Concomitant]
     Active Substance: MELOXICAM
  13. GEODON [Suspect]
     Active Substance: ZIPRASIDONE HYDROCHLORIDE\ZIPRASIDONE MESYLATE
     Indication: OFF LABEL USE
     Dates: start: 20060801, end: 20110101
  14. GEODON [Suspect]
     Active Substance: ZIPRASIDONE HYDROCHLORIDE\ZIPRASIDONE MESYLATE
     Indication: ANXIETY
     Dates: start: 20060801, end: 20110101
  15. ADRAFINIL [Concomitant]
     Active Substance: ADRAFINIL
  16. CAFFEINE. [Concomitant]
     Active Substance: CAFFEINE
  17. KLONOPIN [Concomitant]
     Active Substance: CLONAZEPAM
  18. LISINOPRIL. [Concomitant]
     Active Substance: LISINOPRIL
  19. CARNITINE [Concomitant]
     Active Substance: CARNITINE
  20. ALPHA LIPHIC ACID [Concomitant]

REACTIONS (23)
  - Hyperthermia [None]
  - Hypersomnia [None]
  - Quality of life decreased [None]
  - Anaphylactic reaction [None]
  - Dysphagia [None]
  - Loss of personal independence in daily activities [None]
  - Cataplexy [None]
  - Respiratory distress [None]
  - Bedridden [None]
  - Impaired driving ability [None]
  - Neuroleptic malignant syndrome [None]
  - Malignant hypertension [None]
  - Influenza like illness [None]
  - Neuralgia [None]
  - Restless legs syndrome [None]
  - Withdrawal syndrome [None]
  - Somnolence [None]
  - Therapy change [None]
  - Narcolepsy [None]
  - Disorientation [None]
  - Neuropathy peripheral [None]
  - Dyskinesia [None]
  - Feeling abnormal [None]

NARRATIVE: CASE EVENT DATE: 20060801
